FAERS Safety Report 5330013-7 (Version None)
Quarter: 2007Q2

REPORT INFORMATION
  Report Type: 
  Country: None (occurrence: None)
  Receive Date: 20070521
  Receipt Date: 20070514
  Transmission Date: 20071010
  Serious: Yes (Death, Hospitalization)
  Sender: FDA-Public Use
  Company Number: B0471298A

PATIENT
  Sex: Male

DRUGS (13)
  1. AUGMENTIN '125' [Suspect]
     Indication: DRUG USE FOR UNKNOWN INDICATION
     Dosage: 1INJ PER DAY
     Route: 042
     Dates: start: 20070421, end: 20070421
  2. ASPIRIN [Concomitant]
     Route: 065
  3. AVANDIA [Concomitant]
     Dosage: 4MG UNKNOWN
     Route: 065
  4. WARFARIN SODIUM [Concomitant]
     Route: 065
  5. GLUCOPHAGE [Concomitant]
     Route: 065
  6. LIPITOR [Concomitant]
     Route: 065
  7. NIMESULIDE [Concomitant]
     Route: 065
  8. CITALOPRAM HYDROBROMIDE [Concomitant]
     Route: 065
  9. TRANSDERM-NITRO [Concomitant]
     Route: 065
  10. LOMOTIL [Concomitant]
     Route: 065
  11. CITALOPRAM HYDROBROMIDE [Concomitant]
     Route: 065
  12. CYSTRIN [Concomitant]
     Route: 065
  13. PARACETAMOL [Concomitant]
     Route: 065

REACTIONS (2)
  - ANAPHYLACTIC SHOCK [None]
  - DEATH [None]
